FAERS Safety Report 17485155 (Version 9)
Quarter: 2022Q1

REPORT INFORMATION
  Report Type: Spontaneous
  Country: US (occurrence: US)
  Receive Date: 20200302
  Receipt Date: 20220202
  Transmission Date: 20220423
  Serious: Yes (Death, Life-Threatening, Hospitalization, Other)
  Sender: FDA-Public Use
  Company Number: US-PFIZER INC-2020089684

PATIENT
  Age: 65 Year
  Sex: Female

DRUGS (10)
  1. GABAPENTIN [Interacting]
     Active Substance: GABAPENTIN
     Dosage: UNK
  2. MIRTAZAPINE [Interacting]
     Active Substance: MIRTAZAPINE
     Indication: Schizophrenia
     Dosage: UNK (SEVEN PILLS OF QUETIAPINE, VALPROATE, AND MIRTAZAPINE )
     Route: 048
  3. QUETIAPINE [Interacting]
     Active Substance: QUETIAPINE
     Indication: Bipolar disorder
     Dosage: UNK (SEVEN PILLS OF QUETIAPINE, VALPROATE, AND MIRTAZAPINE )
     Route: 048
  4. QUETIAPINE [Interacting]
     Active Substance: QUETIAPINE
     Indication: Schizophrenia
  5. RANOLAZINE [Interacting]
     Active Substance: RANOLAZINE
     Dosage: 50000 MG, UNK (FIFTY RANOLAZINE TABLETS/50 TABLET,ONCE)
     Route: 048
  6. RIVAROXABAN [Interacting]
     Active Substance: RIVAROXABAN
     Dosage: UNK
  7. TRAZODONE [Interacting]
     Active Substance: TRAZODONE HYDROCHLORIDE
     Indication: Schizophrenia
     Dosage: UNK
  8. TRAZODONE [Interacting]
     Active Substance: TRAZODONE HYDROCHLORIDE
     Indication: Bipolar disorder
  9. VALPROATE [Interacting]
     Active Substance: VALPROIC ACID
     Dosage: UNK (SEVEN PILLS OF QUETIAPINE, VALPROATE, AND MIRTAZAPINE )
     Route: 048
  10. VALPROATE [Interacting]
     Active Substance: VALPROIC ACID
     Dosage: UNK
     Route: 048

REACTIONS (14)
  - Circulatory collapse [Fatal]
  - Toxicity to various agents [Fatal]
  - Cardiac arrest [Fatal]
  - Intentional overdose [Fatal]
  - Drug interaction [Fatal]
  - Electrocardiogram QT prolonged [Unknown]
  - Tonic clonic movements [Unknown]
  - Bradycardia [Unknown]
  - Pulmonary oedema [Unknown]
  - Hypotension [Unknown]
  - Somnolence [Unknown]
  - Hyperhidrosis [Unknown]
  - Hypoxia [Unknown]
  - Blood pressure systolic decreased [Unknown]
